FAERS Safety Report 18113502 (Version 2)
Quarter: 2020Q3

REPORT INFORMATION
  Report Type: Report from Study
  Country: US (occurrence: US)
  Receive Date: 20200805
  Receipt Date: 20200814
  Transmission Date: 20201103
  Serious: Yes (Hospitalization)
  Sender: FDA-Public Use
  Company Number: US-VIIV HEALTHCARE LIMITED-US2020GSK147804

PATIENT
  Age: 34 Week
  Sex: Male
  Weight: 2.39 kg

DRUGS (6)
  1. DOLUTEGRAVIR [Suspect]
     Active Substance: DOLUTEGRAVIR
     Indication: HIV INFECTION
     Dosage: 1 DF, QD
     Route: 064
     Dates: end: 20180301
  2. PENICILLIN G BENZATHINE [Concomitant]
     Active Substance: PENICILLIN G BENZATHINE
     Route: 064
  3. ACYCLOVIR. [Concomitant]
     Active Substance: ACYCLOVIR
     Route: 064
  4. R?CHOP (CYCLOPHOSPHAMIDE + DOXORUBICIN + PREDNISONE + RITUXIMAB + VINC [Concomitant]
  5. ABACAVIRSULPHATE+DOLUTEGRAVIR+LAMIVUDINE [Suspect]
     Active Substance: ABACAVIR SULFATE\DOLUTEGRAVIR SODIUM\LAMIVUDINE
     Indication: HIV INFECTION
     Dosage: 1 DF, QD
     Route: 064
     Dates: start: 20180301, end: 20180511
  6. NEVIRAPINE. [Concomitant]
     Active Substance: NEVIRAPINE

REACTIONS (2)
  - Hypotonia [Recovered/Resolved]
  - Poor feeding infant [Recovered/Resolved]
